FAERS Safety Report 6443873-3 (Version None)
Quarter: 2009Q4

REPORT INFORMATION
  Report Type: 
  Country: None (occurrence: None)
  Receive Date: 20091117
  Receipt Date: 20091110
  Transmission Date: 20100525
  Serious: Yes (Hospitalization, Other)
  Sender: FDA-Public Use
  Company Number: US-MERCK-0911USA01694

PATIENT
  Age: 77 Year
  Sex: Female
  Weight: 47 kg

DRUGS (2)
  1. FOSAMAX [Suspect]
     Indication: OSTEOPOROSIS
     Route: 048
     Dates: start: 20020101, end: 20070101
  2. NOLVADEX [Concomitant]
     Indication: BREAST CANCER STAGE II
     Route: 065

REACTIONS (23)
  - ALLERGIC SINUSITIS [None]
  - ANAEMIA [None]
  - ANAEMIA MACROCYTIC [None]
  - BIPOLAR I DISORDER [None]
  - BLOOD CREATININE INCREASED [None]
  - BLOOD UREA INCREASED [None]
  - BRONCHOSPASM [None]
  - CONVULSION [None]
  - DENTAL CARIES [None]
  - DEPRESSION [None]
  - DIVERTICULITIS [None]
  - ESSENTIAL HYPERTENSION [None]
  - HYPERLIPIDAEMIA [None]
  - HYPOAESTHESIA ORAL [None]
  - JAW DISORDER [None]
  - LYMPHOEDEMA [None]
  - MUSCULOSKELETAL DISORDER [None]
  - MYELODYSPLASTIC SYNDROME [None]
  - OSTEOARTHRITIS [None]
  - OSTEONECROSIS [None]
  - RHINITIS ALLERGIC [None]
  - TOOTH LOSS [None]
  - VAGINAL DISORDER [None]
